FAERS Safety Report 5088296-7 (Version None)
Quarter: 2006Q3

REPORT INFORMATION
  Report Type: 
  Country: None (occurrence: None)
  Receive Date: 20060821
  Receipt Date: 20060808
  Transmission Date: 20061208
  Serious: Yes (Other)
  Sender: FDA-Public Use
  Company Number: CHPA2006US07715

PATIENT
  Age: 57 Year
  Sex: Female
  Weight: 99.3 kg

DRUGS (5)
  1. NICOTINE [Suspect]
     Indication: SMOKING CESSATION THERAPY
     Dosage: 21 MG, QD, TRANSDERMAL
     Route: 062
     Dates: start: 20060726
  2. TEMAZEPAM  WYETH (TEMAZEPAM) [Concomitant]
  3. SEROQUEL [Concomitant]
  4. TRILEPTAL [Concomitant]
  5. TOPAMAX [Concomitant]

REACTIONS (13)
  - ANGER [None]
  - CONDITION AGGRAVATED [None]
  - DISSOCIATION [None]
  - DYSPEPSIA [None]
  - FATIGUE [None]
  - HALLUCINATION [None]
  - HYPOAESTHESIA [None]
  - INTERVERTEBRAL DISC PROTRUSION [None]
  - IRRITABILITY [None]
  - NICOTINE DEPENDENCE [None]
  - PAIN IN EXTREMITY [None]
  - TREATMENT NONCOMPLIANCE [None]
  - TREMOR [None]
